FAERS Safety Report 16062488 (Version 1)
Quarter: 2019Q1

REPORT INFORMATION
  Report Type: Spontaneous
  Country: CA (occurrence: CA)
  Receive Date: 20190312
  Receipt Date: 20190312
  Transmission Date: 20190418
  Serious: Yes (Hospitalization, Other)
  Sender: FDA-Public Use
  Company Number: PHHY2019CA051117

PATIENT
  Age: 41 Year
  Sex: Male

DRUGS (1)
  1. GILENYA [Suspect]
     Active Substance: FINGOLIMOD HYDROCHLORIDE
     Indication: RELAPSING-REMITTING MULTIPLE SCLEROSIS
     Dosage: 0.5 MG, QD
     Route: 048

REACTIONS (4)
  - Blood creatine abnormal [Recovering/Resolving]
  - Glomerular filtration rate abnormal [Recovering/Resolving]
  - Renal disorder [Recovering/Resolving]
  - Granulomatosis with polyangiitis [Recovering/Resolving]
